FAERS Safety Report 22191180 (Version 1)
Quarter: 2023Q2

REPORT INFORMATION
  Report Type: Spontaneous
  Country: US (occurrence: US)
  Receive Date: 20230410
  Receipt Date: 20230410
  Transmission Date: 20230722
  Serious: Yes (Death)
  Sender: FDA-Public Use
  Company Number: US-CTI BIOPHARMA-2023US03499

PATIENT

DRUGS (19)
  1. VONJO [Suspect]
     Active Substance: PACRITINIB
     Indication: Myelofibrosis
     Dosage: 100 MG, BID
     Route: 048
     Dates: start: 20230217
  2. ACYCLOVIR [Concomitant]
     Active Substance: ACYCLOVIR
     Dosage: 400 UNK
     Route: 048
  3. ALLOPURINOL [Concomitant]
     Active Substance: ALLOPURINOL
     Dosage: UNK MG
     Route: 048
  4. AMOXICILLIN [Concomitant]
     Active Substance: AMOXICILLIN
     Dosage: 500 UNK
     Route: 048
  5. ASPIRIN [Concomitant]
     Active Substance: ASPIRIN
     Dosage: UNK MG
     Route: 048
  6. CARVEDILOL [Concomitant]
     Active Substance: CARVEDILOL
     Dosage: UNK MG
     Route: 048
  7. FAMOTIDINE [Concomitant]
     Active Substance: FAMOTIDINE
     Dosage: UNK MG
     Route: 048
  8. FUROSEMIDE [Concomitant]
     Active Substance: FUROSEMIDE
     Dosage: UNK MG
     Route: 048
  9. LOPERAMIDE HYDROCHLORIDE [Concomitant]
     Active Substance: LOPERAMIDE HYDROCHLORIDE
     Dosage: UNK MG
     Route: 048
  10. NITROGLYCERIN [Concomitant]
     Active Substance: NITROGLYCERIN
     Dosage: UNK
     Route: 060
  11. PRAVASTATIN SODIUM [Concomitant]
     Active Substance: PRAVASTATIN SODIUM
     Dosage: UNK MG
     Route: 048
  12. PREDNISONE [Concomitant]
     Active Substance: PREDNISONE
     Dosage: UNK MG
     Route: 048
  13. TAMSULOSIN [Concomitant]
     Active Substance: TAMSULOSIN
     Dosage: UNK MG
     Route: 048
  14. CYCLOBENZAPRINE [Concomitant]
     Active Substance: CYCLOBENZAPRINE
     Dosage: UNK MG
     Route: 048
  15. INDOMETHACIN SODIUM [Concomitant]
     Active Substance: INDOMETHACIN SODIUM
     Dosage: UNK MG
     Route: 048
  16. FIBER THERAPY [Concomitant]
     Dosage: UNK
     Route: 048
  17. MONTELUKAST [Concomitant]
     Active Substance: MONTELUKAST SODIUM
     Dosage: UNK MG
     Route: 048
  18. HYDROCHLOROTHIAZIDE\TRIAMTERENE [Concomitant]
     Active Substance: HYDROCHLOROTHIAZIDE\TRIAMTERENE
     Dosage: 37.5 UNK
     Route: 048
  19. VITAMIN C [Concomitant]
     Active Substance: ASCORBIC ACID
     Dosage: UNK MG
     Route: 048

REACTIONS (1)
  - Death [Fatal]

NARRATIVE: CASE EVENT DATE: 20230301
